FAERS Safety Report 6258030-3 (Version None)
Quarter: 2009Q3

REPORT INFORMATION
  Report Type: 
  Country: None (occurrence: None)
  Receive Date: 20090707
  Receipt Date: 20070626
  Transmission Date: 20100115
  Serious: Yes (Other)
  Sender: FDA-Public Use
  Company Number: US-ASTRAZENECA-2006UW11094

PATIENT
  Age: 53 Year
  Sex: Male
  Weight: 65.8 kg

DRUGS (45)
  1. SEROQUEL [Suspect]
     Indication: BIPOLAR DISORDER
     Route: 048
     Dates: start: 19970101
  2. SEROQUEL [Suspect]
     Indication: SCHIZOPHRENIA
     Route: 048
     Dates: start: 19970101
  3. SEROQUEL [Suspect]
     Indication: AFFECTIVE DISORDER
     Route: 048
     Dates: start: 19970101
  4. SEROQUEL [Suspect]
     Indication: ANXIETY
     Route: 048
     Dates: start: 19970101
  5. SEROQUEL [Suspect]
     Indication: AGITATION
     Route: 048
     Dates: start: 19970101
  6. SEROQUEL [Suspect]
     Indication: MENTAL DISORDER
     Route: 048
     Dates: start: 19970101
  7. SEROQUEL [Suspect]
     Dosage: 40 MG - 600 MG
     Route: 048
     Dates: start: 20031117
  8. SEROQUEL [Suspect]
     Dosage: 40 MG - 600 MG
     Route: 048
     Dates: start: 20031117
  9. SEROQUEL [Suspect]
     Dosage: 40 MG - 600 MG
     Route: 048
     Dates: start: 20031117
  10. SEROQUEL [Suspect]
     Dosage: 40 MG - 600 MG
     Route: 048
     Dates: start: 20031117
  11. SEROQUEL [Suspect]
     Dosage: 40 MG - 600 MG
     Route: 048
     Dates: start: 20031117
  12. SEROQUEL [Suspect]
     Dosage: 40 MG - 600 MG
     Route: 048
     Dates: start: 20031117
  13. RISPERDAL [Concomitant]
     Route: 048
     Dates: start: 19940101
  14. OTHER PSYCHIATRIC MEDICATION [Concomitant]
  15. MARIJUANA [Concomitant]
     Dates: start: 19800101, end: 19940101
  16. COCAINE [Concomitant]
     Dates: start: 19800101, end: 19940101
  17. CITALOPRAM HYDROBROMINE [Concomitant]
     Indication: DEPRESSION
     Dosage: 20 MG - 40 MG
     Route: 048
  18. CITALOPRAM HYDROBROMINE [Concomitant]
     Indication: AFFECTIVE DISORDER
     Dosage: 20 MG - 40 MG
     Route: 048
  19. NAPROXEN [Concomitant]
     Indication: PAIN
     Route: 048
  20. ATENOLOL [Concomitant]
     Indication: HYPERTENSION
     Route: 048
  21. FOSINOPRIL SODIUM [Concomitant]
     Indication: HYPERTENSION
     Route: 048
  22. GABAPENTIN [Concomitant]
     Dosage: 400 MG - 800 MG
     Route: 048
  23. TRAZODONE HCL [Concomitant]
     Route: 048
  24. TEMAZEPAM [Concomitant]
     Indication: INSOMNIA
     Dosage: 15 MG AT NIGHT AS REQUIRED
     Route: 048
  25. PAXIL [Concomitant]
     Indication: DEPRESSION
     Route: 048
  26. ASPIRIN [Concomitant]
     Route: 048
  27. ACETAMINOPHEN [Concomitant]
     Indication: PAIN
     Dosage: 650 MG EVERY FOUR HOURS AS REQUIRED
     Route: 048
  28. ACETAMINOPHEN [Concomitant]
     Indication: PYREXIA
     Dosage: 650 MG EVERY FOUR HOURS AS REQUIRED
     Route: 048
  29. ACETAMINOPHEN [Concomitant]
     Indication: DYSURIA
     Dosage: 650 MG EVERY FOUR HOURS AS REQUIRED
     Route: 048
  30. MAALOX PLUS [Concomitant]
     Indication: DYSPEPSIA
     Dosage: 15 ML THREE TIMES A DAY
     Route: 048
  31. DEXTROMETHORPHAN [Concomitant]
     Indication: COUGH
     Dosage: 10 ML EVERY FOUR HOURS
     Route: 048
  32. ACETAMINOPHEN AND HYDROCODONE BITARTRATE [Concomitant]
     Indication: BACK PAIN
     Dosage: STRENGTH 5/500 MG
     Route: 048
  33. LORAZEPAM [Concomitant]
     Indication: AGITATION
     Dosage: 2 MG EVERY FOUR HOURS AS REQUIRED
     Route: 048
  34. LORAZEPAM [Concomitant]
     Indication: ALCOHOL WITHDRAWAL SYNDROME
     Dosage: 2 MG EVERY FOUR HOURS AS REQUIRED
     Route: 048
  35. MAGNESIUM HYDROXIDE TAB [Concomitant]
     Indication: CONSTIPATION
     Dosage: 30 ML EVERY EIGHT HOURS
     Route: 048
  36. METHOCARBAMOL [Concomitant]
     Indication: MUSCLE SPASMS
     Route: 048
  37. DISALCID [Concomitant]
     Indication: BACK PAIN
     Route: 048
  38. DISALCID [Concomitant]
     Indication: NECK PAIN
     Route: 048
  39. LISINOPRIL [Concomitant]
     Indication: HYPERTENSION
     Route: 048
  40. HYDROCHLOROTHIAZIDE [Concomitant]
     Indication: HYPERTENSION
     Route: 048
  41. GUAIFENESIN [Concomitant]
     Indication: RHINORRHOEA
     Route: 048
  42. GUAIFENESIN [Concomitant]
     Indication: COUGH
     Route: 048
  43. DIPHENHYDRAMINE HCL [Concomitant]
     Indication: SLEEP DISORDER
     Route: 048
  44. DIPHENHYDRAMINE HCL [Concomitant]
     Indication: PRURITUS
     Route: 048
  45. RANITIDINE [Concomitant]

REACTIONS (8)
  - DIABETES MELLITUS [None]
  - DIABETES MELLITUS INADEQUATE CONTROL [None]
  - DIABETIC NEUROPATHY [None]
  - HYPERGLYCAEMIA [None]
  - HYPOGLYCAEMIA [None]
  - NEUROPATHY PERIPHERAL [None]
  - TYPE 1 DIABETES MELLITUS [None]
  - VISION BLURRED [None]
